FAERS Safety Report 15721721 (Version 3)
Quarter: 2019Q1

REPORT INFORMATION
  Report Type: Spontaneous
  Country: NL (occurrence: NL)
  Receive Date: 20181214
  Receipt Date: 20190117
  Transmission Date: 20190417
  Serious: Yes (Hospitalization, Other)
  Sender: FDA-Public Use
  Company Number: NL-AUROBINDO-AUR-APL-2018-060144

PATIENT
  Age: 67 Year
  Sex: Male
  Weight: 78 kg

DRUGS (7)
  1. BISOPROLOL 5 MG [Suspect]
     Active Substance: BISOPROLOL
     Dosage: 5 MILLIGRAM, DAILY
     Route: 048
     Dates: start: 20181029
  2. DOXAZOSIN [Concomitant]
     Active Substance: DOXAZOSIN\DOXAZOSIN MESYLATE
     Indication: PRODUCT USED FOR UNKNOWN INDICATION
     Dosage: UNK UNK, ONCE A DAY
     Route: 048
  3. ELIQUIS [Concomitant]
     Active Substance: APIXABAN
     Indication: PRODUCT USED FOR UNKNOWN INDICATION
     Dosage: UNK UNK, ONCE A DAY
     Route: 048
     Dates: start: 2018
  4. BISOPROLOL FUMARATE. [Interacting]
     Active Substance: BISOPROLOL FUMARATE
     Indication: TRANSIENT ISCHAEMIC ATTACK
     Dosage: 15 MILLIGRAM DAILY; 1 TIME PER DAY 2 CAPSULES
     Route: 048
     Dates: start: 2018
  5. BISOPROLOLFUMARAAT [Suspect]
     Active Substance: BISOPROLOL FUMARATE
     Indication: TRANSIENT ISCHAEMIC ATTACK
     Dosage: 2.5 MILLIGRAM DAILY
     Route: 048
     Dates: start: 2017
  6. BISOPROLOL 5 MG [Suspect]
     Active Substance: BISOPROLOL
     Indication: TRANSIENT ISCHAEMIC ATTACK
     Dosage: 2.5 MILLIGRAM, DAILY
     Route: 065
     Dates: start: 2017
  7. BISOPROLOL 5 MG [Suspect]
     Active Substance: BISOPROLOL
     Dosage: 7.5 MILLIGRAM
     Route: 065
     Dates: start: 2018

REACTIONS (4)
  - Cardiac flutter [Unknown]
  - Gait disturbance [Unknown]
  - Muscle spasms [Not Recovered/Not Resolved]
  - Renal impairment [Not Recovered/Not Resolved]

NARRATIVE: CASE EVENT DATE: 201808
